FAERS Safety Report 9921463 (Version 3)
Quarter: 2014Q2

REPORT INFORMATION
  Report Type: Report from Study
  Country: US (occurrence: US)
  Receive Date: 20140225
  Receipt Date: 20140617
  Transmission Date: 20141212
  Serious: Yes (Hospitalization, Other)
  Sender: FDA-Public Use
  Company Number: US-ROCHE-1352082

PATIENT
  Age: 70 Year
  Sex: Male
  Weight: 87.62 kg

DRUGS (9)
  1. AVASTIN [Suspect]
     Indication: NON-SMALL CELL LUNG CANCER
     Dosage: INTERRUPTED FOR 5 WEEKS WHEN HOSPITALIZED.
     Route: 042
     Dates: start: 201310
  2. AVASTIN [Suspect]
     Dosage: RESTARTED
     Route: 042
  3. MEGESTROL [Concomitant]
     Dosage: 30 MINS BEFORE EACH MEAL
     Route: 048
  4. MORPHINE [Concomitant]
     Indication: ARTHRALGIA
     Route: 048
  5. OXYCODONE [Concomitant]
     Route: 048
  6. TRAZODONE [Concomitant]
     Route: 048
  7. WARFARIN [Concomitant]
     Indication: ANTICOAGULANT THERAPY
     Dosage: 1 MG EVERY DAY EXCEPT MWF 2MG
     Route: 048
  8. FOLIC ACID [Concomitant]
     Indication: ANAEMIA
     Route: 048
  9. DEXAMETHASONE [Concomitant]

REACTIONS (10)
  - Arthralgia [Unknown]
  - Hip fracture [Recovered/Resolved]
  - Fall [Unknown]
  - Full blood count decreased [Recovering/Resolving]
  - Malignant neoplasm progression [Unknown]
  - Arthralgia [Not Recovered/Not Resolved]
  - Dehydration [Recovered/Resolved]
  - Thrombosis [Recovered/Resolved]
  - Haemoptysis [Recovered/Resolved]
  - Weight decreased [Recovered/Resolved]
